FAERS Safety Report 15107877 (Version 1)
Quarter: 2018Q3

REPORT INFORMATION
  Report Type: Spontaneous
  Country: US (occurrence: US)
  Receive Date: 20180704
  Receipt Date: 20180704
  Transmission Date: 20181010
  Serious: No
  Sender: FDA-Public Use
  Company Number: US-B.I. PHARMACEUTICALS,INC./RIDGEFIELD-2018-BI-033766

PATIENT
  Sex: Male

DRUGS (1)
  1. COMBIVENT [Suspect]
     Active Substance: ALBUTEROL SULFATE\IPRATROPIUM BROMIDE
     Indication: SERRATIA INFECTION
     Dosage: STRENGTH: 18 MCG / 103 MCG; FORM: INHALATION AEROSOL
     Route: 055
     Dates: start: 1999, end: 2012

REACTIONS (3)
  - Cough [Recovered/Resolved]
  - Off label use [Unknown]
  - Throat irritation [Recovered/Resolved]

NARRATIVE: CASE EVENT DATE: 1999
